FAERS Safety Report 22526695 (Version 1)
Quarter: 2023Q2

REPORT INFORMATION
  Report Type: Spontaneous
  Country: US (occurrence: US)
  Receive Date: 20230606
  Receipt Date: 20230606
  Transmission Date: 20230722
  Serious: No
  Sender: FDA-Public Use
  Company Number: US-UPSHER-SMITH LABORATORIES, LLC-2022USL00337

PATIENT
  Sex: Female

DRUGS (3)
  1. NYAMYC [Suspect]
     Active Substance: NYSTATIN
     Indication: Fungal infection
     Dosage: UNK, APPLY AS NEEDED
     Route: 061
     Dates: start: 20220430, end: 20220430
  2. NYAMYC [Suspect]
     Active Substance: NYSTATIN
     Indication: Skin disorder
     Dosage: UNK, APPLY AS NEEDED
     Route: 061
     Dates: start: 20220507
  3. NYAMYC [Suspect]
     Active Substance: NYSTATIN
     Indication: Skin irritation

REACTIONS (6)
  - Mouth swelling [Unknown]
  - Lip swelling [Unknown]
  - Respiration abnormal [Unknown]
  - Insomnia [Unknown]
  - Application site pain [Unknown]
  - Rash [Not Recovered/Not Resolved]

NARRATIVE: CASE EVENT DATE: 20220501
